FAERS Safety Report 16917649 (Version 8)
Quarter: 2021Q1

REPORT INFORMATION
  Report Type: Report from Study
  Country: None (occurrence: JP)
  Receive Date: 20191015
  Receipt Date: 20210111
  Transmission Date: 20210419
  Serious: Yes (Hospitalization)
  Sender: FDA-Public Use
  Company Number: JP-ABBVIE-19S-087-2812266-00

PATIENT
  Age: 86 Year
  Sex: Female
  Weight: 40 kg

DRUGS (36)
  1. DUODOPA [Suspect]
     Active Substance: CARBIDOPA\LEVODOPA
     Dosage: MD: 5 ML?CD: 1.6 ML/HR X 4 HRS
     Route: 050
     Dates: start: 20190517, end: 20190517
  2. DONEPEZIL HYDROCHLORIDE. [Concomitant]
     Active Substance: DONEPEZIL HYDROCHLORIDE
     Indication: PRODUCT USED FOR UNKNOWN INDICATION
     Route: 048
     Dates: end: 20190830
  3. ROTIGOTINE [Concomitant]
     Active Substance: ROTIGOTINE
     Route: 062
     Dates: start: 20191011, end: 20191025
  4. ELDECALCITOL [Concomitant]
     Active Substance: ELDECALCITOL
     Indication: PROPHYLAXIS
     Route: 048
     Dates: start: 20191118, end: 20191208
  5. DUODOPA [Suspect]
     Active Substance: CARBIDOPA\LEVODOPA
     Dosage: MD: 5 ML?CD: 1.6 ML/HR X 14 HRS
     Route: 050
     Dates: start: 20190518, end: 20190802
  6. DUODOPA [Suspect]
     Active Substance: CARBIDOPA\LEVODOPA
     Dosage: MD: 8 ML?CD: 1.8 ML/HR X 15 HRS
     Route: 050
     Dates: start: 20191025, end: 20200212
  7. RACOL [Concomitant]
     Active Substance: AMINO ACIDS\DEXTROSE\ELECTROLYTES NOS
     Indication: PRODUCT USED FOR UNKNOWN INDICATION
     Dosage: DAILY DOSE: 2 PACKS
     Route: 065
     Dates: start: 20190413, end: 20190414
  8. RACOL [Concomitant]
     Active Substance: AMINO ACIDS\DEXTROSE\ELECTROLYTES NOS
     Dosage: DAILY DOSE: 2 PACKS
     Route: 065
     Dates: start: 20190521, end: 20190703
  9. DUODOPA [Suspect]
     Active Substance: CARBIDOPA\LEVODOPA
     Dosage: MD: 5 ML?CD: 1.8 ML/HR X 14 HRS
     Route: 050
     Dates: start: 20190513, end: 20190516
  10. DUODOPA [Suspect]
     Active Substance: CARBIDOPA\LEVODOPA
     Dosage: MD: 5 ML?CD: 1.8 ML/HR X 10 HRS
     Route: 050
     Dates: start: 20190517, end: 20190517
  11. ALFACALCIDOL [Concomitant]
     Active Substance: ALFACALCIDOL
     Indication: PROPHYLAXIS
     Route: 048
     Dates: end: 20190413
  12. MOSAPRIDE CITRATE [Concomitant]
     Active Substance: MOSAPRIDE CITRATE
     Indication: PROPHYLAXIS
     Route: 048
     Dates: start: 20190413
  13. ROTIGOTINE [Concomitant]
     Active Substance: ROTIGOTINE
     Route: 062
     Dates: start: 20190215
  14. ZONISAMIDE. [Concomitant]
     Active Substance: ZONISAMIDE
     Indication: PARKINSON^S DISEASE
     Route: 048
     Dates: start: 20191011, end: 20191024
  15. MOSAPRIDE CITRATE DIHYDRATE [Concomitant]
     Active Substance: MOSAPRIDE CITRATE DIHYDRATE
     Route: 048
     Dates: start: 20191213, end: 20200106
  16. DUODOPA [Suspect]
     Active Substance: CARBIDOPA\LEVODOPA
     Dosage: MD: 4 ML?CD: 1.4 ML/HR X 13 HRS?ED: 1.1 ML/UNIT X 3 TIMES
     Route: 050
     Dates: start: 20190419, end: 20190419
  17. DUODOPA [Suspect]
     Active Substance: CARBIDOPA\LEVODOPA
     Dosage: MD: 5 ML?CD: 1.6 ML/HR X 14 HRS?ED: 1 ML/UNIT X 3 TIMES
     Route: 050
     Dates: start: 20190508, end: 20190512
  18. RACOL [Concomitant]
     Active Substance: AMINO ACIDS\DEXTROSE\ELECTROLYTES NOS
     Dosage: DAILY DOSE: 4 PACKS
     Route: 065
     Dates: start: 20190415, end: 20190520
  19. ROTIGOTINE [Concomitant]
     Active Substance: ROTIGOTINE
     Route: 062
     Dates: start: 20190203, end: 20190214
  20. MOSAPRIDE CITRATE DIHYDRATE [Concomitant]
     Active Substance: MOSAPRIDE CITRATE DIHYDRATE
     Indication: PRODUCT USED FOR UNKNOWN INDICATION
     Dates: start: 20190413, end: 20191208
  21. ELDECALCITOL [Concomitant]
     Active Substance: ELDECALCITOL
     Route: 048
     Dates: start: 20191213, end: 20200209
  22. DUODOPA [Suspect]
     Active Substance: CARBIDOPA\LEVODOPA
     Indication: PARKINSON^S DISEASE
     Dosage: MD: 4 ML, CD: 1.4 ML/HR X 12 HRS , ED: 1 ML/UNIT X 2 TIMES
     Route: 050
     Dates: start: 20190412, end: 20190418
  23. DUODOPA [Suspect]
     Active Substance: CARBIDOPA\LEVODOPA
     Dosage: MD: 4.5 ML?CD: 1.4 ML/HR X 13 HRS?ED: 1.5 ML/UNIT X 3 TIMES
     Route: 050
     Dates: start: 20190420, end: 20190422
  24. DUODOPA [Suspect]
     Active Substance: CARBIDOPA\LEVODOPA
     Dosage: MD: 5 ML?CD: 1.4 ML/HR X 14 HRS?ED: 1.5 ML/UNIT X 4 TIMES
     Route: 050
     Dates: start: 20190423, end: 20190423
  25. DUODOPA [Suspect]
     Active Substance: CARBIDOPA\LEVODOPA
     Dosage: MD: 5 ML?CD: 1.4 ML/HR X 8 HRS?ED: 1.5 ML/UNIT X 2 TIMES
     Route: 050
     Dates: start: 20190424, end: 20190424
  26. DUODOPA [Suspect]
     Active Substance: CARBIDOPA\LEVODOPA
     Dosage: MD: 8 ML?CD : 1.8 ML/HR X 14 HRS
     Route: 050
     Dates: start: 20190809, end: 20191011
  27. BROTIZOLAM [Concomitant]
     Active Substance: BROTIZOLAM
     Indication: PRODUCT USED FOR UNKNOWN INDICATION
     Route: 048
     Dates: end: 20190930
  28. ROTIGOTINE [Concomitant]
     Active Substance: ROTIGOTINE
     Indication: PRODUCT USED FOR UNKNOWN INDICATION
     Route: 062
     Dates: start: 20190802, end: 20190810
  29. ALFACALCIDOL [Concomitant]
     Active Substance: ALFACALCIDOL
     Route: 048
     Dates: start: 20190830, end: 20191022
  30. RACOL [Concomitant]
     Active Substance: AMINO ACIDS\DEXTROSE\ELECTROLYTES NOS
     Dosage: DAILY DOSE: 4 PACKS
     Route: 065
     Dates: start: 20190704
  31. ZONISAMIDE. [Concomitant]
     Active Substance: ZONISAMIDE
     Route: 048
     Dates: start: 20200212
  32. CARBIDOPA HYDRATE LEVODOPA [Concomitant]
     Route: 048
     Dates: start: 20200212
  33. OLMESARTAN MEDOXOMIL. [Concomitant]
     Active Substance: OLMESARTAN MEDOXOMIL
     Indication: PRODUCT USED FOR UNKNOWN INDICATION
     Dosage: 2 PACKETS/DAY
     Dates: start: 20190830, end: 20191011
  34. DUODOPA [Suspect]
     Active Substance: CARBIDOPA\LEVODOPA
     Dosage: MD: 5 ML?CD: 1.6 ML/HR X 6 HRS
     Route: 050
     Dates: start: 20190424, end: 20190424
  35. DUODOPA [Suspect]
     Active Substance: CARBIDOPA\LEVODOPA
     Dosage: MD: 5 ML?CD: 1.6 ML/HR X 14 HRS
     Route: 050
     Dates: start: 20190425, end: 20190507
  36. CARBIDOPA HYDRATE LEVODOPA [Concomitant]
     Indication: PARKINSON^S DISEASE
     Route: 048
     Dates: start: 20191011, end: 20191024

REACTIONS (24)
  - Hypothermia [Recovered/Resolved]
  - Dysphonia [Not Recovered/Not Resolved]
  - Constipation [Recovered/Resolved]
  - Constipation [Recovered/Resolved]
  - Constipation [Recovering/Resolving]
  - Occult blood [Unknown]
  - Device kink [Unknown]
  - Fall [Recovering/Resolving]
  - Fall [Recovered/Resolved]
  - Blood pressure increased [Recovered/Resolved]
  - Dementia Alzheimer^s type [Not Recovered/Not Resolved]
  - Constipation [Recovered/Resolved]
  - Stoma site dermatitis [Recovering/Resolving]
  - Herpes zoster [Recovering/Resolving]
  - Chest discomfort [Recovered/Resolved]
  - Skin laceration [Recovered/Resolved]
  - Nausea [Recovered/Resolved]
  - Constipation [Recovered/Resolved]
  - Stoma site hypergranulation [Recovered/Resolved]
  - Hypertension [Recovering/Resolving]
  - Constipation [Recovered/Resolved]
  - Fracture [Recovering/Resolving]
  - Device breakage [Recovered/Resolved]
  - Nausea [Not Recovered/Not Resolved]

NARRATIVE: CASE EVENT DATE: 2019
